FAERS Safety Report 7572650-5 (Version None)
Quarter: 2011Q2

REPORT INFORMATION
  Report Type: 
  Country: None (occurrence: None)
  Receive Date: 20110627
  Receipt Date: 20050120
  Transmission Date: 20111010
  Serious: No
  Sender: FDA-Public Use
  Company Number: 2005BI001729

PATIENT
  Age: 48 Year
  Sex: Female

DRUGS (3)
  1. SOLU-MEDROL [Concomitant]
     Indication: PRODUCT USED FOR UNKNOWN INDICATION
  2. TYSABRI [Suspect]
     Route: 042
  3. TYSABRI [Suspect]
     Indication: MULTIPLE SCLEROSIS
     Route: 042
     Dates: start: 20041222

REACTIONS (3)
  - MEMORY IMPAIRMENT [None]
  - INFLUENZA LIKE ILLNESS [None]
  - FATIGUE [None]
